FAERS Safety Report 12165744 (Version 1)
Quarter: 2016Q1

REPORT INFORMATION
  Report Type: Spontaneous
  Country: US (occurrence: US)
  Receive Date: 20160309
  Receipt Date: 20160309
  Transmission Date: 20160526
  Serious: No
  Sender: FDA-Public Use
  Company Number: US-GLAXOSMITHKLINE-US2016030232

PATIENT
  Age: 69 Year
  Sex: Female

DRUGS (4)
  1. PRINIVIL [Concomitant]
     Active Substance: LISINOPRIL
  2. NORVASC [Concomitant]
     Active Substance: AMLODIPINE BESYLATE
  3. GLUCOPHAGE [Concomitant]
     Active Substance: METFORMIN HYDROCHLORIDE
  4. TANZEUM [Suspect]
     Active Substance: ALBIGLUTIDE
     Indication: PRODUCT USED FOR UNKNOWN INDICATION
     Dosage: 30 MG, U
     Dates: start: 20160215

REACTIONS (11)
  - Arthralgia [Recovering/Resolving]
  - Pain [Unknown]
  - Abdominal pain upper [Recovering/Resolving]
  - Decreased appetite [Not Recovered/Not Resolved]
  - Dyspepsia [Recovering/Resolving]
  - Myalgia [Unknown]
  - Muscular weakness [Recovering/Resolving]
  - Dizziness [Recovering/Resolving]
  - Adverse event [Unknown]
  - Gastrointestinal disorder [Recovering/Resolving]
  - Malaise [Recovering/Resolving]

NARRATIVE: CASE EVENT DATE: 20160215
